FAERS Safety Report 7819001-6 (Version None)
Quarter: 2011Q4

REPORT INFORMATION
  Report Type: 
  Country: None (occurrence: None)
  Receive Date: 20111018
  Receipt Date: 20111007
  Transmission Date: 20120403
  Serious: Yes (Other)
  Sender: FDA-Public Use
  Company Number: IT-JNJFOC-20110911798

PATIENT
  Age: 53 Year
  Sex: Female

DRUGS (1)
  1. REMICADE [Suspect]
     Indication: SPONDYLITIS
     Route: 042
     Dates: start: 20101111, end: 20110916

REACTIONS (3)
  - CHOKING SENSATION [None]
  - MALAISE [None]
  - DRY MOUTH [None]
